FAERS Safety Report 25477774 (Version 1)
Quarter: 2025Q2

REPORT INFORMATION
  Report Type: Spontaneous
  Country: GB (occurrence: GB)
  Receive Date: 20250625
  Receipt Date: 20250625
  Transmission Date: 20250716
  Serious: Yes (Life-Threatening, Hospitalization, Other)
  Sender: MYLAN
  Company Number: GB-MLMSERVICE-20250203-PI391548-00270-1

PATIENT
  Age: 42 Year
  Sex: Female
  Weight: 66 kg

DRUGS (64)
  1. MYCOPHENOLATE MOFETIL [Suspect]
     Active Substance: MYCOPHENOLATE MOFETIL
     Indication: Product used for unknown indication
     Dosage: 0.63 MILLIGRAM, BID
     Dates: start: 2023
  2. MYCOPHENOLATE MOFETIL [Suspect]
     Active Substance: MYCOPHENOLATE MOFETIL
     Dosage: 0.63 MILLIGRAM, BID
     Route: 065
     Dates: start: 2023
  3. MYCOPHENOLATE MOFETIL [Suspect]
     Active Substance: MYCOPHENOLATE MOFETIL
     Dosage: 0.63 MILLIGRAM, BID
     Route: 065
     Dates: start: 2023
  4. MYCOPHENOLATE MOFETIL [Suspect]
     Active Substance: MYCOPHENOLATE MOFETIL
     Dosage: 0.63 MILLIGRAM, BID
     Dates: start: 2023
  5. PREDNISOLONE [Suspect]
     Active Substance: PREDNISOLONE
     Indication: Product used for unknown indication
     Dosage: 20 MILLIGRAM, QD (20 MG, QD)
     Route: 065
  6. PREDNISOLONE [Suspect]
     Active Substance: PREDNISOLONE
     Dosage: 20 MILLIGRAM, QD (20 MG, QD)
  7. PREDNISOLONE [Suspect]
     Active Substance: PREDNISOLONE
     Dosage: 20 MILLIGRAM, QD (20 MG, QD)
  8. PREDNISOLONE [Suspect]
     Active Substance: PREDNISOLONE
     Dosage: 20 MILLIGRAM, QD (20 MG, QD)
     Route: 065
  9. PREDNISOLONE [Suspect]
     Active Substance: PREDNISOLONE
     Dosage: 10 MILLIGRAM, QD (10 MG, QD)
     Route: 065
  10. PREDNISOLONE [Suspect]
     Active Substance: PREDNISOLONE
     Dosage: 10 MILLIGRAM, QD (10 MG, QD)
  11. PREDNISOLONE [Suspect]
     Active Substance: PREDNISOLONE
     Dosage: 10 MILLIGRAM, QD (10 MG, QD)
  12. PREDNISOLONE [Suspect]
     Active Substance: PREDNISOLONE
     Dosage: 10 MILLIGRAM, QD (10 MG, QD)
     Route: 065
  13. VORICONAZOLE [Suspect]
     Active Substance: VORICONAZOLE
     Indication: Fungal infection
     Dosage: 200 MILLIGRAM, BID
  14. VORICONAZOLE [Suspect]
     Active Substance: VORICONAZOLE
     Dosage: 200 MILLIGRAM, BID
     Route: 065
  15. VORICONAZOLE [Suspect]
     Active Substance: VORICONAZOLE
     Dosage: 200 MILLIGRAM, BID
     Route: 065
  16. VORICONAZOLE [Suspect]
     Active Substance: VORICONAZOLE
     Dosage: 200 MILLIGRAM, BID
  17. TACROLIMUS [Suspect]
     Active Substance: TACROLIMUS
     Indication: Product used for unknown indication
     Dosage: 4 MILLIGRAM, AM (MORNING)
     Dates: start: 2023
  18. TACROLIMUS [Suspect]
     Active Substance: TACROLIMUS
     Dosage: 4 MILLIGRAM, AM (MORNING)
     Dates: start: 2023
  19. TACROLIMUS [Suspect]
     Active Substance: TACROLIMUS
     Dosage: 4 MILLIGRAM, AM (MORNING)
     Route: 065
     Dates: start: 2023
  20. TACROLIMUS [Suspect]
     Active Substance: TACROLIMUS
     Dosage: 4 MILLIGRAM, AM (MORNING)
     Route: 065
     Dates: start: 2023
  21. TACROLIMUS [Suspect]
     Active Substance: TACROLIMUS
     Dosage: 4.5 MILLIGRAM, PM (AT NIGHT)
     Dates: start: 2023
  22. TACROLIMUS [Suspect]
     Active Substance: TACROLIMUS
     Dosage: 4.5 MILLIGRAM, PM (AT NIGHT)
     Dates: start: 2023
  23. TACROLIMUS [Suspect]
     Active Substance: TACROLIMUS
     Dosage: 4.5 MILLIGRAM, PM (AT NIGHT)
     Route: 065
     Dates: start: 2023
  24. TACROLIMUS [Suspect]
     Active Substance: TACROLIMUS
     Dosage: 4.5 MILLIGRAM, PM (AT NIGHT)
     Route: 065
     Dates: start: 2023
  25. LEVETIRACETAM [Suspect]
     Active Substance: LEVETIRACETAM
     Indication: Seizure prophylaxis
  26. LEVETIRACETAM [Suspect]
     Active Substance: LEVETIRACETAM
     Route: 065
  27. LEVETIRACETAM [Suspect]
     Active Substance: LEVETIRACETAM
     Route: 065
  28. LEVETIRACETAM [Suspect]
     Active Substance: LEVETIRACETAM
  29. AMPHOTERICIN B [Suspect]
     Active Substance: AMPHOTERICIN B
     Indication: Fungal infection
     Dosage: UNK, 5 MG/KG QD (MILLIGRAM PER KILOGRAM) LIPOSOMAL
  30. AMPHOTERICIN B [Suspect]
     Active Substance: AMPHOTERICIN B
     Dosage: UNK, 5 MG/KG QD (MILLIGRAM PER KILOGRAM) LIPOSOMAL
     Route: 042
  31. AMPHOTERICIN B [Suspect]
     Active Substance: AMPHOTERICIN B
     Dosage: UNK, 5 MG/KG QD (MILLIGRAM PER KILOGRAM) LIPOSOMAL
     Route: 042
  32. AMPHOTERICIN B [Suspect]
     Active Substance: AMPHOTERICIN B
     Dosage: UNK, 5 MG/KG QD (MILLIGRAM PER KILOGRAM) LIPOSOMAL
  33. AMLODIPINE [Concomitant]
     Active Substance: AMLODIPINE BESYLATE
     Indication: Product used for unknown indication
  34. AMLODIPINE [Concomitant]
     Active Substance: AMLODIPINE BESYLATE
     Route: 065
  35. AMLODIPINE [Concomitant]
     Active Substance: AMLODIPINE BESYLATE
     Route: 065
  36. AMLODIPINE [Concomitant]
     Active Substance: AMLODIPINE BESYLATE
  37. ASPIRIN [Concomitant]
     Active Substance: ASPIRIN
     Indication: Product used for unknown indication
  38. ASPIRIN [Concomitant]
     Active Substance: ASPIRIN
     Route: 065
  39. ASPIRIN [Concomitant]
     Active Substance: ASPIRIN
     Route: 065
  40. ASPIRIN [Concomitant]
     Active Substance: ASPIRIN
  41. CANAGLIFLOZIN [Concomitant]
     Active Substance: CANAGLIFLOZIN
     Indication: Product used for unknown indication
  42. CANAGLIFLOZIN [Concomitant]
     Active Substance: CANAGLIFLOZIN
     Route: 065
  43. CANAGLIFLOZIN [Concomitant]
     Active Substance: CANAGLIFLOZIN
     Route: 065
  44. CANAGLIFLOZIN [Concomitant]
     Active Substance: CANAGLIFLOZIN
  45. CHOLECALCIFEROL [Concomitant]
     Active Substance: CHOLECALCIFEROL
     Indication: Product used for unknown indication
  46. CHOLECALCIFEROL [Concomitant]
     Active Substance: CHOLECALCIFEROL
     Route: 065
  47. CHOLECALCIFEROL [Concomitant]
     Active Substance: CHOLECALCIFEROL
     Route: 065
  48. CHOLECALCIFEROL [Concomitant]
     Active Substance: CHOLECALCIFEROL
  49. IRBESARTAN [Concomitant]
     Active Substance: IRBESARTAN
  50. IRBESARTAN [Concomitant]
     Active Substance: IRBESARTAN
     Route: 065
  51. IRBESARTAN [Concomitant]
     Active Substance: IRBESARTAN
     Route: 065
  52. IRBESARTAN [Concomitant]
     Active Substance: IRBESARTAN
  53. LANSOPRAZOLE [Concomitant]
     Active Substance: LANSOPRAZOLE
     Indication: Product used for unknown indication
  54. LANSOPRAZOLE [Concomitant]
     Active Substance: LANSOPRAZOLE
     Route: 065
  55. LANSOPRAZOLE [Concomitant]
     Active Substance: LANSOPRAZOLE
     Route: 065
  56. LANSOPRAZOLE [Concomitant]
     Active Substance: LANSOPRAZOLE
  57. SODIUM BICARBONATE [Concomitant]
     Active Substance: SODIUM BICARBONATE
     Indication: Product used for unknown indication
  58. SODIUM BICARBONATE [Concomitant]
     Active Substance: SODIUM BICARBONATE
     Route: 065
  59. SODIUM BICARBONATE [Concomitant]
     Active Substance: SODIUM BICARBONATE
     Route: 065
  60. SODIUM BICARBONATE [Concomitant]
     Active Substance: SODIUM BICARBONATE
  61. FLUCYTOSINE [Concomitant]
     Active Substance: FLUCYTOSINE
     Indication: Fungal infection
     Dosage: 3 MILLIGRAM, QD
  62. FLUCYTOSINE [Concomitant]
     Active Substance: FLUCYTOSINE
     Dosage: 3 MILLIGRAM, QD
     Route: 065
  63. FLUCYTOSINE [Concomitant]
     Active Substance: FLUCYTOSINE
     Dosage: 3 MILLIGRAM, QD
     Route: 065
  64. FLUCYTOSINE [Concomitant]
     Active Substance: FLUCYTOSINE
     Dosage: 3 MILLIGRAM, QD

REACTIONS (22)
  - Hemianopia homonymous [Not Recovered/Not Resolved]
  - Photopsia [Not Recovered/Not Resolved]
  - Generalised tonic-clonic seizure [Not Recovered/Not Resolved]
  - Tongue biting [Not Recovered/Not Resolved]
  - Postictal state [Not Recovered/Not Resolved]
  - Mass [Not Recovered/Not Resolved]
  - Cerebral fungal infection [Not Recovered/Not Resolved]
  - Hemiparesis [Not Recovered/Not Resolved]
  - Facial paresis [Not Recovered/Not Resolved]
  - Vasogenic cerebral oedema [Not Recovered/Not Resolved]
  - Partial seizures [Not Recovered/Not Resolved]
  - Headache [Not Recovered/Not Resolved]
  - Fatigue [Not Recovered/Not Resolved]
  - Muscular weakness [Recovering/Resolving]
  - Abscess [Not Recovered/Not Resolved]
  - Movement disorder [Recovering/Resolving]
  - Pneumonia fungal [Not Recovered/Not Resolved]
  - Fungal skin infection [Not Recovered/Not Resolved]
  - Rhinitis [Not Recovered/Not Resolved]
  - Seizure [Unknown]
  - Fluorosis [Recovered/Resolved]
  - Drug ineffective [Unknown]

NARRATIVE: CASE EVENT DATE: 20230101
